FAERS Safety Report 7603937-5 (Version None)
Quarter: 2011Q3

REPORT INFORMATION
  Report Type: 
  Country: None (occurrence: None)
  Receive Date: 20110712
  Receipt Date: 20110704
  Transmission Date: 20111222
  Serious: Yes (Hospitalization, Other)
  Sender: FDA-Public Use
  Company Number: BR-ROCHE-787414

PATIENT
  Sex: Female
  Weight: 104 kg

DRUGS (4)
  1. LIPITOR [Suspect]
     Dosage: DRUG REPORTED AS LIPTOR AND INDICTAION CHOLESTROL AND TRIGLCYERIDES.
     Route: 048
     Dates: start: 20080101
  2. CLONAZEPAM [Suspect]
     Indication: DEPRESSION
     Dosage: FREQUENCY: DAILY
     Route: 065
     Dates: start: 19710101
  3. LIPITOR [Suspect]
     Route: 048
     Dates: start: 20110627
  4. TAMOXIFEN CITRATE [Suspect]
     Indication: BREAST CANCER
     Route: 065
     Dates: start: 20110101

REACTIONS (18)
  - HEPATIC STEATOSIS [None]
  - CONVULSION [None]
  - DRUG INEFFECTIVE [None]
  - INSOMNIA [None]
  - DEPENDENCE [None]
  - ABDOMINAL DISTENSION [None]
  - DECREASED APPETITE [None]
  - OEDEMA PERIPHERAL [None]
  - WOUND SECRETION [None]
  - CHOLELITHIASIS [None]
  - WEIGHT INCREASED [None]
  - ANAL HAEMORRHAGE [None]
  - FAECES HARD [None]
  - BOREDOM [None]
  - LABYRINTHITIS [None]
  - BREAST CANCER [None]
  - VOMITING [None]
  - DEPRESSED MOOD [None]
